FAERS Safety Report 11782333 (Version 1)
Quarter: 2015Q4

REPORT INFORMATION
  Report Type: Report from Study
  Country: US (occurrence: US)
  Receive Date: 20151127
  Receipt Date: 20151127
  Transmission Date: 20160305
  Serious: Yes (Hospitalization)
  Sender: FDA-Public Use
  Company Number: US-ROCHE-1667043

PATIENT
  Age: 65 Year
  Sex: Female

DRUGS (2)
  1. BEVACIZUMAB [Suspect]
     Active Substance: BEVACIZUMAB
     Indication: BREAST CANCER METASTATIC
     Dosage: OVER 30 TO 90 MIN ON DAYS 1 AND 15 (28 DAYS CYCLE), LAST DOSE PRIOR TO SAE :16/NOV/2009
     Route: 042
     Dates: start: 20090921
  2. IXABEPILONE [Suspect]
     Active Substance: IXABEPILONE
     Indication: BREAST CANCER METASTATIC
     Dosage: OVER 1 HR ON DAYS 1, 8 AND 15, 28 DAYS CYCLE, LAST DOSE PRIOR TO SAE :16/NOV/2009
     Route: 042
     Dates: start: 20090921

REACTIONS (3)
  - Dyspnoea [Recovered/Resolved]
  - Hypoxia [Recovered/Resolved]
  - Lung infection [Recovered/Resolved]

NARRATIVE: CASE EVENT DATE: 20091204
